FAERS Safety Report 7413705-5 (Version None)
Quarter: 2011Q2

REPORT INFORMATION
  Report Type: 
  Country: None (occurrence: None)
  Receive Date: 20110413
  Receipt Date: 20110407
  Transmission Date: 20111010
  Serious: Yes (Hospitalization)
  Sender: FDA-Public Use
  Company Number: PHHO2011US06223

PATIENT
  Age: 72 Year
  Sex: Male
  Weight: 105.9 kg

DRUGS (9)
  1. METOPROLOL TARTRATE [Concomitant]
  2. AMG 479 [Suspect]
     Indication: NEOPLASM MALIGNANT
     Dosage: 12 MG/KG, Q2WKS
     Route: 042
     Dates: start: 20101130, end: 20110302
  3. FISH OIL [Concomitant]
  4. SIMVASTATIN [Concomitant]
  5. MULTI-VITAMIN [Concomitant]
  6. ACYCLOVIR [Concomitant]
  7. LOSARTAN [Concomitant]
  8. AFINITOR [Suspect]
     Indication: NEOPLASM MALIGNANT
     Dosage: 5 MG, TIW
     Route: 048
     Dates: start: 20101130, end: 20110315
  9. AMLODIPINE [Concomitant]

REACTIONS (2)
  - PLEURAL EFFUSION [None]
  - PERICARDIAL EFFUSION [None]
